FAERS Safety Report 14553925 (Version 1)
Quarter: 2018Q1

REPORT INFORMATION
  Report Type: Spontaneous
  Country: NL (occurrence: NL)
  Receive Date: 20180220
  Receipt Date: 20180220
  Transmission Date: 20180509
  Serious: Yes (Other)
  Sender: FDA-Public Use
  Company Number: NL-NATCO PHARMA-2018NAT00050

PATIENT
  Age: 46 Year
  Sex: Female

DRUGS (2)
  1. ONDANSETRON [Suspect]
     Active Substance: ONDANSETRON
     Dosage: 4 MG, ONCE
     Route: 042
  2. HYDROXYCHLOROQUINE [Suspect]
     Active Substance: HYDROXYCHLOROQUINE
     Dosage: 800 MG (FOUR 200-MG TABLETS), ONCE
     Route: 048

REACTIONS (3)
  - Ventricular arrhythmia [Recovered/Resolved]
  - Cardiotoxicity [Recovered/Resolved]
  - Drug interaction [Recovered/Resolved]
